FAERS Safety Report 5127674-4 (Version None)
Quarter: 2006Q4

REPORT INFORMATION
  Report Type: 
  Country: None (occurrence: None)
  Receive Date: 20061016
  Receipt Date: 20061011
  Transmission Date: 20070319
  Serious: Yes (Death, Other)
  Sender: FDA-Public Use
  Company Number: PHBS2006IE15807

PATIENT
  Age: 68 Year
  Sex: Female

DRUGS (11)
  1. GLEEVEC [Suspect]
     Indication: PULMONARY HYPERTENSION
     Dosage: 600 MG/DAY
     Route: 065
     Dates: start: 20050901, end: 20060823
  2. SILDENAFIL [Concomitant]
     Dosage: MAXIMUM DOSE
  3. WARFARIN SODIUM [Concomitant]
  4. DIGOXIN [Concomitant]
  5. FRUMIL [Concomitant]
  6. NEXIUM [Concomitant]
  7. BOSENTAN [Concomitant]
     Dosage: MAXIMUM DOSE
  8. ILOPROST [Concomitant]
     Dates: start: 20020101
  9. COLCHICINE [Concomitant]
  10. OXYGEN [Concomitant]
  11. REMODALIN [Concomitant]
     Route: 058
     Dates: start: 20060831

REACTIONS (5)
  - ABDOMINAL DISCOMFORT [None]
  - CARDIAC FAILURE [None]
  - GASTRIC POLYPECTOMY [None]
  - GASTRIC POLYPS [None]
  - PULMONARY HYPERTENSION [None]
